FAERS Safety Report 5332892-6 (Version None)
Quarter: 2007Q2

REPORT INFORMATION
  Report Type: 
  Country: None (occurrence: None)
  Receive Date: 20070521
  Receipt Date: 20070504
  Transmission Date: 20071010
  Serious: Yes (Other)
  Sender: FDA-Public Use
  Company Number: 2007RR-07451

PATIENT
  Age: 74 Year
  Sex: Female

DRUGS (1)
  1. FENOFIBRATE [Suspect]

REACTIONS (3)
  - AREFLEXIA [None]
  - PARAPARESIS [None]
  - VASCULITIS [None]
